FAERS Safety Report 5849508-2 (Version None)
Quarter: 2008Q3

REPORT INFORMATION
  Report Type: 
  Country: None (occurrence: None)
  Receive Date: 20080819
  Receipt Date: 20080811
  Transmission Date: 20090109
  Serious: No
  Sender: FDA-Public Use
  Company Number: A0737977A

PATIENT
  Age: 34 Year
  Sex: Female
  Weight: 59.1 kg

DRUGS (2)
  1. TREXIMET [Suspect]
     Indication: MIGRAINE
     Dosage: 2TAB SEE DOSAGE TEXT
     Route: 048
  2. UNKNOWN [Concomitant]

REACTIONS (5)
  - DRUG ADMINISTRATION ERROR [None]
  - INCORRECT DOSE ADMINISTERED [None]
  - MOVEMENT DISORDER [None]
  - OVERDOSE [None]
  - PARALYSIS [None]
